FAERS Safety Report 20052473 (Version 1)
Quarter: 2021Q4

REPORT INFORMATION
  Report Type: Spontaneous
  Country: US (occurrence: US)
  Receive Date: 20211110
  Receipt Date: 20211110
  Transmission Date: 20220303
  Serious: No
  Sender: FDA-Public Use
  Company Number: US-SANOFI-00841055

PATIENT
  Age: 33 Year
  Sex: Male
  Weight: 117.91 kg

DRUGS (2)
  1. XYZAL [Suspect]
     Active Substance: LEVOCETIRIZINE DIHYDROCHLORIDE
  2. GUAIFENESIN [Suspect]
     Active Substance: GUAIFENESIN

REACTIONS (6)
  - Pyrexia [Not Recovered/Not Resolved]
  - Head discomfort [Not Recovered/Not Resolved]
  - Pruritus [Not Recovered/Not Resolved]
  - Unevaluable event [Not Recovered/Not Resolved]
  - Therapeutic response shortened [Unknown]
  - Treatment noncompliance [Unknown]
